FAERS Safety Report 4286591-2 (Version None)
Quarter: 2004Q1

REPORT INFORMATION
  Report Type: 
  Country: None (occurrence: None)
  Receive Date: 20040205
  Receipt Date: 20040205
  Transmission Date: 20041129
  Serious: No
  Sender: FDA-Public Use
  Company Number: None

PATIENT

DRUGS (1)
  1. TEGRETOL [Suspect]
     Dosage: 600 MG PO TWICE DAILY
     Route: 048
     Dates: end: 20010101

REACTIONS (1)
  - PHARMACEUTICAL PRODUCT COMPLAINT [None]
